FAERS Safety Report 7075222-4 (Version None)
Quarter: 2010Q4

REPORT INFORMATION
  Report Type: 
  Country: None (occurrence: None)
  Receive Date: 20101030
  Receipt Date: 20100907
  Transmission Date: 20110411
  Serious: No
  Sender: FDA-Public Use
  Company Number: US-WYE-H16453110

PATIENT
  Sex: Male
  Weight: 86.26 kg

DRUGS (4)
  1. PRISTIQ [Suspect]
     Indication: DIZZINESS
     Dates: start: 20100101
  2. PRISTIQ [Suspect]
     Indication: SYNCOPE
  3. ZONEGRAN [Concomitant]
  4. SYNTHROID [Concomitant]

REACTIONS (1)
  - TREMOR [None]
